FAERS Safety Report 25563505 (Version 1)
Quarter: 2025Q3

REPORT INFORMATION
  Report Type: Spontaneous
  Country: US (occurrence: US)
  Receive Date: 20250716
  Receipt Date: 20250716
  Transmission Date: 20251020
  Serious: Yes (Hospitalization, Other)
  Sender: SOLENO THERAPEUTICS
  Company Number: US-SOLENO THERAPEUTICS, INC.-SOL2025000160

PATIENT
  Sex: Female
  Weight: 80 kg

DRUGS (1)
  1. VYKAT XR [Suspect]
     Active Substance: DIAZOXIDE CHOLINE
     Indication: Prader-Willi syndrome
     Route: 065
     Dates: start: 202505

REACTIONS (1)
  - Pulmonary hypertension [Unknown]

NARRATIVE: CASE EVENT DATE: 20250401
